FAERS Safety Report 5279006-9 (Version None)
Quarter: 2007Q1

REPORT INFORMATION
  Report Type: 
  Country: None (occurrence: None)
  Receive Date: 20070328
  Receipt Date: 20060929
  Transmission Date: 20070707
  Serious: No
  Sender: FDA-Public Use
  Company Number: US-AMGEN-US195225

PATIENT
  Sex: Female
  Weight: 88.6 kg

DRUGS (9)
  1. NEULASTA [Suspect]
     Indication: CHEMOTHERAPY
     Route: 058
     Dates: start: 20060922, end: 20060922
  2. GLEEVEC [Concomitant]
     Dates: start: 20060601
  3. IMODIUM [Concomitant]
     Route: 065
     Dates: start: 20060901
  4. LORAZEPAM [Concomitant]
     Route: 065
     Dates: start: 20060901
  5. APAP TAB [Concomitant]
     Route: 065
     Dates: start: 20060601
  6. AMBIEN [Concomitant]
     Dates: start: 20060908
  7. CYTOXAN [Concomitant]
     Route: 065
     Dates: start: 20060701
  8. VINCRISTINE [Concomitant]
     Route: 065
     Dates: start: 20060701
  9. DOXORUBICIN HYDROCHLORIDE [Concomitant]
     Route: 065
     Dates: start: 20060701

REACTIONS (3)
  - DEHYDRATION [None]
  - FEELING ABNORMAL [None]
  - NEUTROPENIA [None]
